FAERS Safety Report 6394295-5 (Version None)
Quarter: 2009Q4

REPORT INFORMATION
  Report Type: 
  Country: None (occurrence: None)
  Receive Date: 20091006
  Receipt Date: 20090921
  Transmission Date: 20100525
  Serious: Yes (Life-Threatening)
  Sender: FDA-Public Use
  Company Number: AUR-APL-2009-00704

PATIENT
  Age: 54 Year
  Sex: Female
  Weight: 80 kg

DRUGS (3)
  1. MIRTAZAPINE [Suspect]
     Indication: DEPRESSION
     Dosage: 45 MG, DAILY, ORAL
     Route: 048
     Dates: start: 20090306, end: 20090629
  2. CYMBALTA [Concomitant]
  3. ELONTRIL [Concomitant]

REACTIONS (4)
  - HAEMATOMA [None]
  - LEUKOPENIA [None]
  - MOUTH HAEMORRHAGE [None]
  - THROMBOCYTOPENIA [None]
